FAERS Safety Report 12895160 (Version 1)
Quarter: 2016Q4

REPORT INFORMATION
  Report Type: Report from Study
  Country: FR (occurrence: FR)
  Receive Date: 20161029
  Receipt Date: 20161029
  Transmission Date: 20170207
  Serious: Yes (Hospitalization)
  Sender: FDA-Public Use
  Company Number: FR-AMGEN-FRACT2016148398

PATIENT
  Age: 59 Year
  Sex: Female

DRUGS (9)
  1. 5-FU [Suspect]
     Active Substance: FLUOROURACIL
     Indication: ANAL SQUAMOUS CELL CARCINOMA
     Dosage: 2550 MG, CYCLICAL
     Route: 041
     Dates: start: 20160705, end: 20160705
  2. IMODIUM [Concomitant]
     Active Substance: LOPERAMIDE HYDROCHLORIDE
     Indication: NAUSEA
     Dosage: UNK
     Route: 048
     Dates: start: 20160714
  3. AMETYCINE [Suspect]
     Active Substance: MITOMYCIN
     Indication: ANAL SQUAMOUS CELL CARCINOMA
     Dosage: 16 MG, CYCLICAL
     Route: 041
     Dates: start: 20160705, end: 20160705
  4. SMECTA [Concomitant]
     Active Substance: MONTMORILLONITE
     Indication: DIARRHOEA
     Dosage: UNK
     Dates: start: 20160714
  5. TETRALYSAL [Concomitant]
     Active Substance: LYMECYCLINE
     Indication: PROPHYLAXIS
     Dosage: 300 MG, QD
     Route: 048
     Dates: start: 20160720
  6. PANITUMUMAB [Suspect]
     Active Substance: PANITUMUMAB
     Indication: ANAL SQUAMOUS CELL CARCINOMA
     Dosage: 164 MG, CYCLICAL
     Route: 041
     Dates: start: 20160705, end: 20160719
  7. 5-FU [Suspect]
     Active Substance: FLUOROURACIL
     Dosage: 2550 MG, CYCLICAL
     Route: 041
     Dates: start: 20160808
  8. AMETYCINE [Suspect]
     Active Substance: MITOMYCIN
     Dosage: 16 MG, CYCLICAL
     Route: 041
     Dates: start: 20160808
  9. TOLEXINE [Concomitant]
     Active Substance: DOXYCYCLINE
     Indication: PROPHYLAXIS
     Dosage: 300 MG, QD
     Route: 048
     Dates: start: 20160705, end: 20160719

REACTIONS (1)
  - Vaginal fistula [Recovering/Resolving]

NARRATIVE: CASE EVENT DATE: 20160721
